FAERS Safety Report 21676175 (Version 1)
Quarter: 2022Q4

REPORT INFORMATION
  Report Type: Spontaneous
  Country: US (occurrence: US)
  Receive Date: 20221202
  Receipt Date: 20221202
  Transmission Date: 20230113
  Serious: Yes (Disabling)
  Sender: FDA-Public Use
  Company Number: US-TEVA-2022-US-2832673

PATIENT
  Sex: Female

DRUGS (1)
  1. PREDNISONE [Suspect]
     Active Substance: PREDNISONE
     Indication: Myasthenia gravis
     Dosage: INITIAL DOSE: 40MG OF PREDNISONE DAILY, TO BE INCREASED AT 5MG/DAY,/WEEK, UNTIL REACHED 70 MG/DAY
     Route: 065
     Dates: start: 20200130, end: 20200505

REACTIONS (12)
  - Product prescribing error [Unknown]
  - Type 2 diabetes mellitus [Unknown]
  - Myocardial injury [Unknown]
  - Endocrine disorder [Unknown]
  - Cardiac disorder [Unknown]
  - Abdominal pain [Unknown]
  - Diverticulum intestinal [Unknown]
  - Intestinal perforation [Unknown]
  - Abdominal sepsis [Unknown]
  - Dyschezia [Unknown]
  - Renal disorder [Unknown]
  - Weight increased [Unknown]

NARRATIVE: CASE EVENT DATE: 20200323
